FAERS Safety Report 7339412-5 (Version None)
Quarter: 2011Q1

REPORT INFORMATION
  Report Type: 
  Country: None (occurrence: None)
  Receive Date: 20110308
  Receipt Date: 20101206
  Transmission Date: 20110831
  Serious: No
  Sender: FDA-Public Use
  Company Number: US-AMGEN-USASP2010008076

PATIENT
  Age: 86 Year
  Sex: Female

DRUGS (9)
  1. CALCIUM WITH VITAMIN D             /00944201/ [Concomitant]
     Dosage: UNK UNK, BID
  2. ASPIRIN [Concomitant]
     Dosage: 1 MG, QD
  3. VESICARE [Concomitant]
  4. DEXLANSOPRAZOLE [Concomitant]
     Dosage: 1 MG, QD
  5. GLUCOSAMINE W/CHONDROITIN [Concomitant]
     Dosage: UNK UNK, QD
  6. MUSCLE RELAXANTS [Concomitant]
     Dosage: UNK UNK, PRN
  7. PROLIA [Suspect]
     Indication: OSTEOPOROSIS POSTMENOPAUSAL
     Dosage: 60 MG, Q6MO
     Dates: start: 20101130
  8. SERTRALINE HYDROCHLORIDE [Concomitant]
     Dosage: UNK UNK, QD
  9. TRIAMTERENE AND HYDROCHLOROTHIAZIDE [Concomitant]
     Dosage: UNK UNK, QD

REACTIONS (4)
  - PAIN [None]
  - INFLUENZA [None]
  - GAIT DISTURBANCE [None]
  - INFLUENZA LIKE ILLNESS [None]
